FAERS Safety Report 7772802-5 (Version None)
Quarter: 2011Q3

REPORT INFORMATION
  Report Type: 
  Country: None (occurrence: None)
  Receive Date: 20110922
  Receipt Date: 20110301
  Transmission Date: 20111222
  Serious: No
  Sender: FDA-Public Use
  Company Number: US-ASTRAZENECA-2011SE11161

PATIENT
  Age: 16469 Day
  Sex: Male

DRUGS (10)
  1. NAVANE [Concomitant]
     Dates: start: 20040915
  2. SEROQUEL [Suspect]
     Route: 048
     Dates: start: 20010129
  3. NEURONTIN [Concomitant]
     Dosage: 300 MG ONE OR TWO PRN QAM
     Dates: start: 20010129
  4. CLOZAPINE [Concomitant]
     Dosage: 150 MG TO 300 MG  QHS
     Dates: start: 20010129
  5. PROZAC [Concomitant]
     Dates: start: 20010129
  6. ATENOLOL [Concomitant]
     Dates: start: 20010129
  7. ATENOLOL [Concomitant]
     Dates: start: 20010129
  8. TOPAURAX [Concomitant]
     Dosage: 25 MG TO 100 MG BD
     Dates: start: 20010129
  9. SEROQUEL [Suspect]
     Route: 048
     Dates: start: 20040915
  10. LITHONATE [Concomitant]
     Dates: start: 20010129

REACTIONS (7)
  - PAIN IN EXTREMITY [None]
  - DIABETES MELLITUS INADEQUATE CONTROL [None]
  - MUSCLE TWITCHING [None]
  - VISION BLURRED [None]
  - DIABETES MELLITUS [None]
  - ASTHENIA [None]
  - NAUSEA [None]
